FAERS Safety Report 6596627-1 (Version None)
Quarter: 2010Q1

REPORT INFORMATION
  Report Type: 
  Country: None (occurrence: None)
  Receive Date: 20100223
  Receipt Date: 20100212
  Transmission Date: 20100710
  Serious: Yes (Other)
  Sender: FDA-Public Use
  Company Number: JP-PFIZER INC-2010019450

PATIENT
  Age: 46 Year
  Sex: Male

DRUGS (4)
  1. ZITHROMAC SR [Suspect]
     Indication: ACUTE SINUSITIS
     Dosage: 2 G, 1X/DAY
     Route: 048
     Dates: start: 20100208, end: 20100208
  2. MUCODYNE [Concomitant]
     Route: 048
  3. IODINE [Concomitant]
     Route: 048
  4. BIOFERMIN R [Concomitant]
     Route: 048

REACTIONS (2)
  - CHILLS [None]
  - PERIPHERAL COLDNESS [None]
